FAERS Safety Report 8312036-9 (Version None)
Quarter: 2012Q2

REPORT INFORMATION
  Report Type: 
  Country: None (occurrence: None)
  Receive Date: 20120425
  Receipt Date: 20120411
  Transmission Date: 20120825
  Serious: Yes (Disabling)
  Sender: FDA-Public Use
  Company Number: CA-ELI_LILLY_AND_COMPANY-CA201204003796

PATIENT
  Age: 49 Year
  Sex: Male
  Weight: 81.633 kg

DRUGS (6)
  1. LEVOTHYROXINE SODIUM [Concomitant]
     Dosage: UNK
  2. HYDROMORPHONE HCL [Concomitant]
     Dosage: 12 MG, UNK
  3. IBUPROFEN [Concomitant]
  4. CYMBALTA [Suspect]
     Dosage: 60 MG, QD
     Route: 048
  5. PANTOPRAZOLE [Concomitant]
  6. HYDROMORPHONE HCL [Concomitant]

REACTIONS (29)
  - ARTHRALGIA [None]
  - DIZZINESS [None]
  - HEART RATE INCREASED [None]
  - FEELING ABNORMAL [None]
  - RASH [None]
  - BLOOD PRESSURE DECREASED [None]
  - FATIGUE [None]
  - MOOD SWINGS [None]
  - PARAESTHESIA [None]
  - VERTIGO [None]
  - DYSGRAPHIA [None]
  - ANXIETY [None]
  - DISTURBANCE IN ATTENTION [None]
  - HYPERHIDROSIS [None]
  - HYPERTENSION [None]
  - MEMORY IMPAIRMENT [None]
  - VISION BLURRED [None]
  - DRUG INEFFECTIVE [None]
  - ANGER [None]
  - HYPOAESTHESIA [None]
  - TEMPERATURE INTOLERANCE [None]
  - URTICARIA [None]
  - ASTHENIA [None]
  - MUSCULOSKELETAL STIFFNESS [None]
  - NAUSEA [None]
  - READING DISORDER [None]
  - CONFUSIONAL STATE [None]
  - HEAT RASH [None]
  - HOT FLUSH [None]
